FAERS Safety Report 9260582 (Version 1)
Quarter: 2013Q2

REPORT INFORMATION
  Report Type: Spontaneous
  Country: US (occurrence: US)
  Receive Date: 20130426
  Receipt Date: 20130426
  Transmission Date: 20140414
  Serious: Yes (Hospitalization, Other)
  Sender: FDA-Public Use
  Company Number: US-RB-034290-11

PATIENT
  Age: 41 Year
  Sex: Male

DRUGS (1)
  1. SUBOXONE TABLET [Suspect]
     Indication: PAIN
     Dosage: DOSING DETAILS UNKNOWN
     Route: 060

REACTIONS (3)
  - Road traffic accident [Recovered/Resolved]
  - Coma [Recovered/Resolved]
  - Gait disturbance [Not Recovered/Not Resolved]
